FAERS Safety Report 10300045 (Version 1)
Quarter: 2014Q3

REPORT INFORMATION
  Report Type: Spontaneous
  Country: US (occurrence: US)
  Receive Date: 20140711
  Receipt Date: 20140711
  Transmission Date: 20150326
  Serious: Yes (Hospitalization)
  Sender: FDA-Public Use
  Company Number: US-GLAXOSMITHKLINE-A1080183A

PATIENT
  Age: 51 Year
  Sex: Female

DRUGS (8)
  1. TAFINLAR [Suspect]
     Active Substance: DABRAFENIB MESYLATE
     Indication: NEOPLASM MALIGNANT
     Dosage: 150MG TWICE PER DAY
     Route: 048
     Dates: start: 20140313, end: 20140703
  2. OXYCODONE [Concomitant]
     Active Substance: OXYCODONE
  3. CHEMOTHERAPY [Concomitant]
     Active Substance: UNSPECIFIED INGREDIENT
  4. ONDANSETRON [Concomitant]
     Active Substance: ONDANSETRON
  5. DIAZEPAM. [Concomitant]
     Active Substance: DIAZEPAM
  6. HYDROMORPHONE [Concomitant]
     Active Substance: HYDROMORPHONE
  7. OXYCONTIN [Concomitant]
     Active Substance: OXYCODONE HYDROCHLORIDE
  8. MEKINIST [Suspect]
     Active Substance: TRAMETINIB DIMETHYL SULFOXIDE
     Indication: NEOPLASM MALIGNANT
     Dosage: 2MG PER DAY
     Route: 048
     Dates: start: 20140313, end: 20140703

REACTIONS (4)
  - Pain [Recovering/Resolving]
  - Neoplasm [Unknown]
  - Bone pain [Recovering/Resolving]
  - Brain neoplasm [Unknown]
